FAERS Safety Report 8272138-2 (Version None)
Quarter: 2012Q2

REPORT INFORMATION
  Report Type: 
  Country: None (occurrence: None)
  Receive Date: 20120410
  Receipt Date: 20111220
  Transmission Date: 20120825
  Serious: No
  Sender: FDA-Public Use
  Company Number: US-ASTRAZENECA-2011SE67813

PATIENT
  Age: 29 Year
  Sex: Female

DRUGS (10)
  1. CALCITRIOL [Concomitant]
     Dosage: 1 MCG/ML
  2. LIOTHYRONINE SODIUM [Concomitant]
     Dosage: 5 MCG DAILY
  3. LORATADINE [Concomitant]
  4. INSULIN [Concomitant]
     Dosage: 3 ML
  5. SUCRALFATE [Concomitant]
  6. OCTREOTIDE ACETATE [Concomitant]
     Dosage: 100 MCG/ML
  7. ALBUTEROL SULFATE [Concomitant]
     Dosage: 2.5 MG/3 ML
  8. CALCIUM CITRATE+D [Concomitant]
     Dosage: 250-200 MG DAILY
  9. VANDETANIB [Suspect]
     Indication: THYROID CANCER
     Route: 048
  10. PANCRELIPASE 1000 [Concomitant]
     Dosage: 30-10-30 MG QID

REACTIONS (7)
  - HYPOAESTHESIA [None]
  - RASH [None]
  - PARAESTHESIA [None]
  - NAUSEA [None]
  - ORAL PAIN [None]
  - DYSPNOEA AT REST [None]
  - VISION BLURRED [None]
